FAERS Safety Report 19359807 (Version 4)
Quarter: 2021Q3

REPORT INFORMATION
  Report Type: Spontaneous
  Country: US (occurrence: US)
  Receive Date: 20210601
  Receipt Date: 20210826
  Transmission Date: 20211014
  Serious: No
  Sender: FDA-Public Use
  Company Number: US-PFIZER INC-2021498109

PATIENT
  Age: 16 Year
  Sex: Female

DRUGS (1)
  1. DEPO?PROVERA [Suspect]
     Active Substance: MEDROXYPROGESTERONE ACETATE
     Indication: CONTRACEPTION
     Dosage: (104MG/0.65ML SUBCUTANEOUS INJECTIONS)
     Route: 058

REACTIONS (3)
  - Syringe issue [Unknown]
  - Product quality issue [Unknown]
  - Drug dose omission by device [Unknown]
